FAERS Safety Report 7445617-5 (Version None)
Quarter: 2011Q2

REPORT INFORMATION
  Report Type: 
  Country: None (occurrence: None)
  Receive Date: 20110429
  Receipt Date: 20110420
  Transmission Date: 20111010
  Serious: Yes (Life-Threatening)
  Sender: FDA-Public Use
  Company Number: GB-ROCHE-773298

PATIENT
  Age: 30 Year
  Sex: Female

DRUGS (4)
  1. ISOTRETINOIN [Suspect]
     Route: 048
     Dates: start: 20100201
  2. ZOPICLONE [Concomitant]
     Route: 048
  3. TRAZODONE [Concomitant]
     Route: 048
  4. ISOTRETINOIN [Suspect]
     Indication: ACNE
     Route: 048
     Dates: end: 20110327

REACTIONS (2)
  - INTENTIONAL OVERDOSE [None]
  - SUICIDE ATTEMPT [None]
